FAERS Safety Report 12175418 (Version 1)
Quarter: 2016Q1

REPORT INFORMATION
  Report Type: Spontaneous
  Country: US (occurrence: US)
  Receive Date: 20160314
  Receipt Date: 20160314
  Transmission Date: 20160526
  Serious: Yes (Hospitalization)
  Sender: FDA-Public Use
  Company Number: US-JNJFOC-20080205645

PATIENT
  Age: 80 Year
  Sex: Female

DRUGS (9)
  1. LEVAQUIN [Suspect]
     Active Substance: LEVOFLOXACIN
     Indication: URINARY TRACT INFECTION
     Route: 065
     Dates: start: 20060408
  2. LEVAQUIN [Suspect]
     Active Substance: LEVOFLOXACIN
     Indication: PNEUMONIA
     Route: 065
     Dates: start: 20060408
  3. LEVAQUIN [Suspect]
     Active Substance: LEVOFLOXACIN
     Indication: UPPER RESPIRATORY TRACT INFECTION
     Route: 065
     Dates: start: 20060408
  4. BENZQUINAMIDE. [Concomitant]
     Active Substance: BENZQUINAMIDE
  5. DITROPAN XL [Concomitant]
     Active Substance: OXYBUTYNIN CHLORIDE
  6. FOSAMAX [Concomitant]
     Active Substance: ALENDRONATE SODIUM
  7. ^VITAMINS^ (NOS) [Concomitant]
  8. PROTONIX [Concomitant]
     Active Substance: PANTOPRAZOLE SODIUM
  9. PREDNISONE. [Suspect]
     Active Substance: PREDNISONE
     Indication: TEMPORAL ARTERITIS
     Route: 065
     Dates: start: 1998

REACTIONS (2)
  - Cellulitis [Recovered/Resolved]
  - Tendon rupture [Recovered/Resolved]

NARRATIVE: CASE EVENT DATE: 2006
